FAERS Safety Report 7851849 (Version 3)
Quarter: 2012Q4

REPORT INFORMATION
  Report Type: 
  Country: US (occurrence: US)
  Receive Date: 20110311
  Receipt Date: 20120918
  Transmission Date: 20130627
  Serious: Yes (Hospitalization)
  Sender: FDA-Public Use
  Company Number: US-BAYER-2011-021723

PATIENT
  Age: 38 None
  Sex: Female
  Weight: 101.59 kg

DRUGS (5)
  1. YASMIN [Suspect]
     Dosage: UNK
     Dates: start: 200601, end: 2008
  2. BENADRYL [Concomitant]
     Indication: MULTIPLE ALLERGIES
     Dosage: 1 DF, PRN
     Route: 048
  3. PRO-AIR [Concomitant]
     Dosage: 1 puff(s), PRN
     Route: 055
  4. RETIN A [Concomitant]
     Dosage: UNK UNK, QD
     Route: 061
  5. AMOXICILLIN [Concomitant]
     Dosage: UNK
     Dates: start: 200903

REACTIONS (5)
  - Cholelithiasis [None]
  - Cholecystitis chronic [None]
  - Gallbladder disorder [None]
  - Pain [None]
  - Injury [None]
